FAERS Safety Report 6399007-7 (Version None)
Quarter: 2009Q4

REPORT INFORMATION
  Report Type: 
  Country: None (occurrence: None)
  Receive Date: 20091008
  Receipt Date: 20091008
  Transmission Date: 20100525
  Serious: Yes (Death)
  Sender: FDA-Public Use
  Company Number: None

PATIENT
  Sex: Male
  Weight: 125 kg

DRUGS (5)
  1. DOXORUBICIN HCL [Suspect]
     Dosage: 1832 MG
     Dates: end: 20090901
  2. PREDNISONE [Suspect]
     Dosage: 500 MG
     Dates: end: 20090905
  3. RITUXIMAB (MOAB C2B8 ANTI CD20, CHIMERIC) [Suspect]
     Dosage: 916 MG
     Dates: end: 20090811
  4. VINCRISTINE SULFATE [Suspect]
     Dosage: 2 MG
     Dates: end: 20090901
  5. CYCLOPHOSPHAMIDE [Suspect]
     Dosage: 1832 MG
     Dates: end: 20090901

REACTIONS (1)
  - CORONARY ARTERY DISEASE [None]
